FAERS Safety Report 20035126 (Version 2)
Quarter: 2021Q4

REPORT INFORMATION
  Report Type: Spontaneous
  Country: US (occurrence: US)
  Receive Date: 20211104
  Receipt Date: 20211117
  Transmission Date: 20220303
  Serious: Yes (Hospitalization)
  Sender: FDA-Public Use
  Company Number: US-TEVA-2021-US-1972600

PATIENT
  Age: 52 Year
  Sex: Female

DRUGS (2)
  1. PREDNISONE [Suspect]
     Active Substance: PREDNISONE
     Indication: Rheumatoid arthritis
     Route: 065
  2. LEFLUNOMIDE [Suspect]
     Active Substance: LEFLUNOMIDE
     Indication: Rheumatoid arthritis
     Route: 065

REACTIONS (14)
  - Cellulitis gangrenous [Unknown]
  - Abscess limb [Unknown]
  - Pseudomonas infection [Unknown]
  - Ecthyma [Unknown]
  - Escherichia bacteraemia [Unknown]
  - Enterococcal infection [Unknown]
  - Purulent discharge [Unknown]
  - Encephalopathy [Unknown]
  - Renal failure [Unknown]
  - Shock [Unknown]
  - Lymphopenia [Unknown]
  - Respiratory distress [Unknown]
  - Hypoxia [Unknown]
  - Pulmonary alveolar haemorrhage [Unknown]
